FAERS Safety Report 16705456 (Version 1)
Quarter: 2019Q3

REPORT INFORMATION
  Report Type: Spontaneous
  Country: US (occurrence: US)
  Receive Date: 20190628
  Receipt Date: 20190628
  Transmission Date: 20191004
  Serious: Yes (Hospitalization)
  Sender: FDA-Public Use
  Company Number: None

PATIENT
  Age: 7 Year
  Sex: Male
  Weight: 19.5 kg

DRUGS (4)
  1. ONCASPAR [Suspect]
     Active Substance: PEGASPARGASE
     Dates: end: 20190525
  2. METHOTREXATE. [Suspect]
     Active Substance: METHOTREXATE
     Dates: end: 20190524
  3. VINCRISTINE SULFATE. [Suspect]
     Active Substance: VINCRISTINE SULFATE
     Dates: end: 20190516
  4. DEXAMETHASONE. [Suspect]
     Active Substance: DEXAMETHASONE
     Dates: end: 20190520

REACTIONS (11)
  - Mucosal inflammation [None]
  - Blood count abnormal [None]
  - Pain in jaw [None]
  - Face oedema [None]
  - Fatigue [None]
  - Lip haemorrhage [None]
  - Vomiting [None]
  - Swelling face [None]
  - Facial pain [None]
  - Ear pain [None]
  - Deafness [None]

NARRATIVE: CASE EVENT DATE: 20190530
